FAERS Safety Report 8072317-3 (Version None)
Quarter: 2012Q1

REPORT INFORMATION
  Report Type: 
  Country: None (occurrence: None)
  Receive Date: 20120126
  Receipt Date: 20120123
  Transmission Date: 20120608
  Serious: No
  Sender: FDA-Public Use
  Company Number: US-PFIZER INC-2011311489

PATIENT
  Sex: Female
  Weight: 65.76 kg

DRUGS (6)
  1. MAXZIDE [Concomitant]
     Indication: HYPERTENSION
     Dosage: UNK
  2. LISINOPRIL [Concomitant]
     Dosage: 10 MG, 1X/DAY
  3. SERTRALINE [Concomitant]
     Dosage: 50 MG, 1X/DAY
  4. FLECTOR [Suspect]
     Indication: ARTHRALGIA
     Dosage: UNK
     Route: 061
     Dates: start: 20111218, end: 20111224
  5. SIMVASTATIN [Concomitant]
     Indication: BLOOD CHOLESTEROL INCREASED
     Dosage: 40 MG, 1X/DAY
  6. XANAX [Concomitant]
     Dosage: UNK

REACTIONS (1)
  - RASH [None]
